FAERS Safety Report 24234090 (Version 2)
Quarter: 2025Q3

REPORT INFORMATION
  Report Type: Spontaneous
  Country: US (occurrence: US)
  Receive Date: 20240821
  Receipt Date: 20250731
  Transmission Date: 20251021
  Serious: No
  Sender: BAYER HEALTHCARE PHARMACEUTICALS INC.
  Company Number: US-BAYER-2024A119524

PATIENT
  Age: 72 Year
  Sex: Female

DRUGS (1)
  1. MIRENA [Suspect]
     Active Substance: LEVONORGESTREL
     Indication: Endometrial cancer
     Dosage: 20?G/DAY
     Route: 015
     Dates: start: 20240729, end: 20240729

REACTIONS (3)
  - Procedural pain [None]
  - Complication of device insertion [None]
  - Off label use [None]

NARRATIVE: CASE EVENT DATE: 20240729
